FAERS Safety Report 5661227-4 (Version None)
Quarter: 2008Q1

REPORT INFORMATION
  Report Type: 
  Country: None (occurrence: None)
  Receive Date: 20080312
  Receipt Date: 20080304
  Transmission Date: 20080703
  Serious: Yes (Other)
  Sender: FDA-Public Use
  Company Number: A0713309A

PATIENT
  Age: 61 Year
  Sex: Female

DRUGS (6)
  1. ADVAIR DISKUS 100/50 [Suspect]
     Dosage: 1PUFF TWICE PER DAY
     Route: 055
     Dates: start: 20050101
  2. VYTORIN [Concomitant]
  3. NEXIUM [Concomitant]
  4. LEXAPRO [Concomitant]
  5. PLAVIX [Concomitant]
  6. EVISTA [Concomitant]

REACTIONS (5)
  - CANDIDIASIS [None]
  - FUNGAL INFECTION [None]
  - FUNGAL OESOPHAGITIS [None]
  - PLEURISY [None]
  - PNEUMONIA [None]
